FAERS Safety Report 11642092 (Version 3)
Quarter: 2015Q4

REPORT INFORMATION
  Report Type: Report from Study
  Country: BR (occurrence: BR)
  Receive Date: 20151019
  Receipt Date: 20151028
  Transmission Date: 20160304
  Serious: Yes (Hospitalization)
  Sender: FDA-Public Use
  Company Number: BR-ABBVIE-15K-020-1482284-00

PATIENT
  Age: 62 Year
  Sex: Female

DRUGS (1)
  1. HUMIRA [Suspect]
     Active Substance: ADALIMUMAB
     Indication: CROHN^S DISEASE
     Route: 058
     Dates: start: 20091101

REACTIONS (6)
  - Muscle atrophy [Unknown]
  - Asthenia [Unknown]
  - Fatigue [Unknown]
  - Respiratory arrest [Recovered/Resolved]
  - Pulmonary oedema [Recovered/Resolved]
  - Increased appetite [Unknown]

NARRATIVE: CASE EVENT DATE: 201510
